FAERS Safety Report 14773095 (Version 1)
Quarter: 2018Q2

REPORT INFORMATION
  Report Type: Spontaneous
  Country: US (occurrence: US)
  Receive Date: 20180418
  Receipt Date: 20180418
  Transmission Date: 20180711
  Serious: Yes (Death)
  Sender: FDA-Public Use
  Company Number: US-ROCHE-2108634

PATIENT
  Age: 50 Year
  Sex: Male

DRUGS (7)
  1. DEXAMETHASON [Concomitant]
     Active Substance: DEXAMETHASONE
  2. GABAPENTIN. [Concomitant]
     Active Substance: GABAPENTIN
  3. ONDASETRON [Concomitant]
     Active Substance: ONDANSETRON
  4. COTELLIC [Suspect]
     Active Substance: COBIMETINIB
     Indication: MALIGNANT MELANOMA
     Dosage: ON DAYS 1-21
     Route: 048
     Dates: start: 20170804, end: 20180403
  5. LORAZEPAM. [Concomitant]
     Active Substance: LORAZEPAM
  6. ZELBORAF [Suspect]
     Active Substance: VEMURAFENIB
     Indication: MALIGNANT MELANOMA
     Route: 048
     Dates: start: 20170804, end: 20180403
  7. LEVOTHYROXIN [Concomitant]
     Active Substance: LEVOTHYROXINE

REACTIONS (1)
  - Death [Fatal]

NARRATIVE: CASE EVENT DATE: 20180403
